FAERS Safety Report 24546950 (Version 6)
Quarter: 2025Q1

REPORT INFORMATION
  Report Type: Spontaneous
  Country: BR (occurrence: BR)
  Receive Date: 20241025
  Receipt Date: 20250124
  Transmission Date: 20250409
  Serious: Yes (Life-Threatening, Hospitalization, Other)
  Sender: NOVO NORDISK
  Company Number: BR-NOVOPROD-1303999

PATIENT
  Sex: Female

DRUGS (2)
  1. OZEMPIC [Suspect]
     Active Substance: SEMAGLUTIDE
     Indication: Product used for unknown indication
     Dates: start: 20241017
  2. FIASP [Suspect]
     Active Substance: INSULIN ASPART
     Indication: Product used for unknown indication
     Dates: start: 20241017

REACTIONS (3)
  - Hypoglycaemic unconsciousness [Recovered/Resolved]
  - Counterfeit product administered [Recovered/Resolved]
  - Product label counterfeit [Recovered/Resolved]

NARRATIVE: CASE EVENT DATE: 20241017
